FAERS Safety Report 12339233 (Version 1)
Quarter: 2016Q2

REPORT INFORMATION
  Report Type: Spontaneous
  Country: FR (occurrence: FR)
  Receive Date: 20160505
  Receipt Date: 20160505
  Transmission Date: 20160815
  Serious: Yes (Hospitalization)
  Sender: FDA-Public Use
  Company Number: US-ASTRAZENECA-2016SE45931

PATIENT
  Age: 40 Year
  Sex: Female

DRUGS (13)
  1. XGEVA [Suspect]
     Active Substance: DENOSUMAB
     Indication: BONE NEOPLASM
     Route: 058
     Dates: start: 20141215
  2. CORTANCYL [Suspect]
     Active Substance: PREDNISONE
     Route: 048
     Dates: start: 2010
  3. TRAMADOL HYDROCHLORIDE. [Concomitant]
     Active Substance: TRAMADOL HYDROCHLORIDE
     Indication: PAIN
     Dosage: UNK
     Route: 048
  4. AMLOR [Suspect]
     Active Substance: AMLODIPINE BESYLATE
     Route: 048
  5. INEXIUM [Suspect]
     Active Substance: ESOMEPRAZOLE
     Route: 048
  6. FENOFIBRATE. [Suspect]
     Active Substance: FENOFIBRATE
     Indication: DYSLIPIDAEMIA
     Route: 048
  7. MONURIL ADULTES [Suspect]
     Active Substance: FOSFOMYCIN TROMETHAMINE
     Indication: URINARY TRACT INFECTION
     Route: 048
     Dates: start: 20160117, end: 20160117
  8. COVERSYL [Suspect]
     Active Substance: PERINDOPRIL
     Route: 048
  9. ZOPICLONE [Suspect]
     Active Substance: ZOPICLONE
     Route: 048
  10. DAFALGAN [Suspect]
     Active Substance: ACETAMINOPHEN
     Route: 048
  11. LEVOTHYROX [Suspect]
     Active Substance: LEVOTHYROXINE
     Route: 048
  12. PREVISCAN [Suspect]
     Active Substance: FLUINDIONE
     Indication: PULMONARY EMBOLISM
     Route: 048
  13. SEROPLEX [Suspect]
     Active Substance: ESCITALOPRAM OXALATE
     Route: 048

REACTIONS (8)
  - Large intestine perforation [Unknown]
  - Cholecystitis infective [Recovered/Resolved]
  - Enterobacter infection [Unknown]
  - Chemical peritonitis [Unknown]
  - Large intestinal obstruction [Unknown]
  - Septic shock [Unknown]
  - Colitis [Recovered/Resolved]
  - Pneumonia [Unknown]

NARRATIVE: CASE EVENT DATE: 201601
